FAERS Safety Report 13956827 (Version 1)
Quarter: 2017Q3

REPORT INFORMATION
  Report Type: Spontaneous
  Country: JP (occurrence: JP)
  Receive Date: 20170911
  Receipt Date: 20170911
  Transmission Date: 20171128
  Serious: Yes (Death)
  Sender: FDA-Public Use
  Company Number: JP-PFIZER INC-2017380310

PATIENT

DRUGS (6)
  1. HALCION [Suspect]
     Active Substance: TRIAZOLAM
     Route: 048
  2. ZOPICLONE [Suspect]
     Active Substance: ZOPICLONE
  3. BROMPERIDOL [Suspect]
     Active Substance: BROMPERIDOL
  4. FLUNITRAZEPAM [Suspect]
     Active Substance: FLUNITRAZEPAM
  5. BENZA BLOCK L [Suspect]
     Active Substance: CAFFEINE\CHLORPHENIRAMINE\DIHYDROCODEINE\IBUPROFEN\PSEUDOEPHEDRINE
  6. HALOXAZOLAM [Suspect]
     Active Substance: HALOXAZOLAM

REACTIONS (2)
  - Drowning [Fatal]
  - Drug screen positive [Fatal]
